FAERS Safety Report 4446166-9 (Version None)
Quarter: 2004Q3

REPORT INFORMATION
  Report Type: 
  Country: None (occurrence: None)
  Receive Date: 20040908
  Receipt Date: 20040831
  Transmission Date: 20050211
  Serious: Yes (Hospitalization)
  Sender: FDA-Public Use
  Company Number: FR-BRISTOL-MYERS SQUIBB COMPANY-12687901

PATIENT
  Age: 77 Year
  Sex: Female

DRUGS (7)
  1. COUMADIN [Suspect]
     Route: 048
     Dates: end: 20040101
  2. LASILIX RETARD [Concomitant]
  3. TARDYFERON [Concomitant]
  4. TEMESTA [Concomitant]
  5. TRIATEC [Concomitant]
  6. EUPANTOL [Concomitant]
  7. PRAVASTATIN [Concomitant]

REACTIONS (3)
  - ANAEMIA [None]
  - COAGULOPATHY [None]
  - HAEMOLYSIS [None]
